FAERS Safety Report 19885909 (Version 1)
Quarter: 2021Q3

REPORT INFORMATION
  Report Type: Spontaneous
  Country: BR (occurrence: BR)
  Receive Date: 20210927
  Receipt Date: 20210927
  Transmission Date: 20211014
  Serious: Yes (Other)
  Sender: FDA-Public Use
  Company Number: BR-BAXTER-2021BAX029593

PATIENT
  Age: 1 Year
  Sex: Male
  Weight: 15 kg

DRUGS (9)
  1. HOLOXANE [Suspect]
     Active Substance: IFOSFAMIDE
     Dosage: THIRD CYCLE, PER 3 DAYS
     Route: 065
     Dates: start: 20210111, end: 20210114
  2. HOLOXANE [Suspect]
     Active Substance: IFOSFAMIDE
     Indication: PRODUCT USED FOR UNKNOWN INDICATION
     Dosage: FIRST CYCLE, PER 3 DAYS
     Route: 065
     Dates: start: 20201121, end: 20201124
  3. VINCRISTINE [Suspect]
     Active Substance: VINCRISTINE
     Dosage: SECOND CYCLE, PER 3 DAYS
     Route: 065
     Dates: start: 20201216, end: 20201219
  4. VINCRISTINE [Suspect]
     Active Substance: VINCRISTINE
     Dosage: THIRD CYCLE, PER 3 DAYS
     Route: 065
     Dates: start: 20210111, end: 20210114
  5. CARBOPLATIN. [Suspect]
     Active Substance: CARBOPLATIN
     Dosage: SECOND CYCLE, PER 3 DAYS
     Route: 065
     Dates: start: 20201216, end: 20201219
  6. VINCRISTINE [Suspect]
     Active Substance: VINCRISTINE
     Indication: PRODUCT USED FOR UNKNOWN INDICATION
     Dosage: FIRST CYCLE,PER 3 DAYS
     Route: 065
     Dates: start: 20201121, end: 20201124
  7. HOLOXANE [Suspect]
     Active Substance: IFOSFAMIDE
     Dosage: SECOND CYCLE, PER 3 DAYS
     Route: 065
     Dates: start: 20201216, end: 20201219
  8. CARBOPLATIN. [Suspect]
     Active Substance: CARBOPLATIN
     Indication: PRODUCT USED FOR UNKNOWN INDICATION
     Dosage: FIRST CYCLE, PER 3 DAYS
     Route: 065
     Dates: start: 20201121, end: 20201124
  9. CARBOPLATIN. [Suspect]
     Active Substance: CARBOPLATIN
     Dosage: THIRD CYCLE, PER 3 DAYS
     Route: 065
     Dates: start: 20210111, end: 20210114

REACTIONS (5)
  - Neutropenia [Unknown]
  - Oedema [Unknown]
  - Hydrocephalus [Unknown]
  - Pyrexia [Unknown]
  - Central nervous system lesion [Unknown]

NARRATIVE: CASE EVENT DATE: 20210215
